FAERS Safety Report 4327921-2 (Version None)
Quarter: 2004Q1

REPORT INFORMATION
  Report Type: 
  Country: None (occurrence: None)
  Receive Date: 20040325
  Receipt Date: 20040315
  Transmission Date: 20041129
  Serious: Yes (Other)
  Sender: FDA-Public Use
  Company Number: ZONI001365

PATIENT
  Age: 23 Year
  Sex: Female

DRUGS (1)
  1. ZONEGRAN [Suspect]
     Dosage: ORAL
     Route: 048
     Dates: start: 20030901

REACTIONS (4)
  - HAEMOGLOBIN DECREASED [None]
  - LEUKAEMIA [None]
  - PLATELET COUNT DECREASED [None]
  - WHITE BLOOD CELL COUNT DECREASED [None]
